FAERS Safety Report 5236934-8 (Version None)
Quarter: 2007Q1

REPORT INFORMATION
  Report Type: 
  Country: None (occurrence: None)
  Receive Date: 20070213
  Receipt Date: 20070131
  Transmission Date: 20070707
  Serious: Yes (Other)
  Sender: FDA-Public Use
  Company Number: PHBS2005JP16242

PATIENT
  Age: 59 Year
  Sex: Female

DRUGS (4)
  1. SIMULECT [Suspect]
     Indication: RENAL TRANSPLANT
     Route: 065
  2. TACROLIMUS [Suspect]
     Indication: RENAL TRANSPLANT
  3. CELLCEPT [Concomitant]
     Indication: RENAL TRANSPLANT
  4. STEROIDS NOS [Concomitant]
     Indication: RENAL TRANSPLANT

REACTIONS (2)
  - ANTI-ERYTHROCYTE ANTIBODY POSITIVE [None]
  - HAEMOLYTIC ANAEMIA [None]
